FAERS Safety Report 14552060 (Version 3)
Quarter: 2018Q2

REPORT INFORMATION
  Report Type: Report from Study
  Country: None (occurrence: CO)
  Receive Date: 20180220
  Receipt Date: 20180409
  Transmission Date: 20180711
  Serious: Yes (Hospitalization, Other)
  Sender: FDA-Public Use
  Company Number: CO-ABBVIE-18K-036-2262359-00

PATIENT
  Age: 59 Year
  Sex: Male

DRUGS (2)
  1. PREDNISOLONE. [Concomitant]
     Active Substance: PREDNISOLONE
     Indication: PRODUCT USED FOR UNKNOWN INDICATION
  2. HUMIRA [Suspect]
     Active Substance: ADALIMUMAB
     Indication: ANKYLOSING SPONDYLITIS
     Route: 058
     Dates: start: 20161117, end: 20180102

REACTIONS (8)
  - Renal failure [Unknown]
  - Pyrexia [Recovered/Resolved]
  - Inflammation [Recovering/Resolving]
  - Hyponatraemia [Unknown]
  - Pyrexia [Not Recovered/Not Resolved]
  - Spinal anaesthesia [Unknown]
  - Gastroenteritis [Recovering/Resolving]
  - Diarrhoea [Not Recovered/Not Resolved]

NARRATIVE: CASE EVENT DATE: 2018
